FAERS Safety Report 6078630-3 (Version None)
Quarter: 2009Q1

REPORT INFORMATION
  Report Type: 
  Country: None (occurrence: None)
  Receive Date: 20090215
  Receipt Date: 20090106
  Transmission Date: 20090719
  Serious: Yes (Other)
  Sender: FDA-Public Use
  Company Number: BR-PFIZER INC-2008152993

PATIENT

DRUGS (1)
  1. DOXAZOSIN MESILATE [Suspect]
     Indication: RESIDUAL URINE
     Dosage: 4 MG, 1X/DAY
     Route: 048
     Dates: start: 20081201

REACTIONS (4)
  - DRUG INEFFECTIVE [None]
  - DYSURIA [None]
  - URINARY INCONTINENCE [None]
  - URINE OUTPUT DECREASED [None]
